FAERS Safety Report 4397696-X (Version None)
Quarter: 2004Q3

REPORT INFORMATION
  Report Type: 
  Country: None (occurrence: None)
  Receive Date: 20040713
  Receipt Date: 20040701
  Transmission Date: 20050211
  Serious: Yes (Hospitalization)
  Sender: FDA-Public Use
  Company Number: 2004222080US

PATIENT
  Age: 28 Year
  Sex: Male
  Weight: 71.7 kg

DRUGS (2)
  1. CELEBREX [Suspect]
     Indication: PAIN
     Dosage: 2 X 200 MG, HS; 2 X 200 MG, IN THE MORNING
     Dates: start: 20040622, end: 20040622
  2. CELEBREX [Suspect]
     Indication: PAIN
     Dosage: 2 X 200 MG, HS; 2 X 200 MG, IN THE MORNING
     Dates: start: 20040623, end: 20040623

REACTIONS (4)
  - ABDOMINAL DISTENSION [None]
  - ABDOMINAL PAIN UPPER [None]
  - DIARRHOEA [None]
  - MUSCLE CRAMP [None]
